FAERS Safety Report 11876646 (Version 3)
Quarter: 2016Q1

REPORT INFORMATION
  Report Type: Spontaneous
  Country: JP (occurrence: JP)
  Receive Date: 20151229
  Receipt Date: 20160219
  Transmission Date: 20160526
  Serious: Yes (Death, Disabling)
  Sender: FDA-Public Use
  Company Number: JP-GILEAD-2015-0189813

PATIENT
  Age: 80 Year
  Sex: Female
  Weight: 40 kg

DRUGS (8)
  1. LUSEFI [Concomitant]
     Indication: DIABETES MELLITUS
     Dosage: 25 MG, UNK
     Route: 048
     Dates: start: 20150625, end: 20151212
  2. URSO [Concomitant]
     Active Substance: URSODIOL
     Indication: HEPATIC CIRRHOSIS
     Dosage: 600 MG, UNK
     Route: 048
     Dates: end: 20151212
  3. SPIRONOLACTONE. [Concomitant]
     Active Substance: SPIRONOLACTONE
     Indication: HYPERTENSION
     Dosage: 25 MG, UNK
     Route: 048
     Dates: end: 20151212
  4. SOVALDI [Suspect]
     Active Substance: SOFOSBUVIR
     Indication: HEPATIC CIRRHOSIS
     Dosage: 400 MG, UNK
     Route: 048
     Dates: start: 20151016, end: 20151212
  5. COPEGUS [Concomitant]
     Active Substance: RIBAVIRIN
     Indication: HEPATIC CIRRHOSIS
     Dosage: 400 MG, UNK
     Route: 048
     Dates: start: 20151016, end: 20151212
  6. L CARTIN FF [Concomitant]
     Active Substance: LEVOCARNITINE
     Indication: HEPATIC CIRRHOSIS
     Dosage: 300 MG, UNK
     Route: 048
     Dates: end: 20151212
  7. LASIX [Concomitant]
     Active Substance: FUROSEMIDE
     Indication: HYPERTENSION
     Dosage: 20 MG, UNK
     Route: 048
     Dates: end: 20151212
  8. TENELIA [Concomitant]
     Active Substance: TENELIGLIPTIN
     Indication: DIABETES MELLITUS
     Dosage: 20 MG, UNK
     Route: 048
     Dates: start: 20150625, end: 20151212

REACTIONS (2)
  - Radius fracture [Fatal]
  - Fall [Unknown]

NARRATIVE: CASE EVENT DATE: 20151024
